FAERS Safety Report 5584561-5 (Version None)
Quarter: 2008Q1

REPORT INFORMATION
  Report Type: 
  Country: None (occurrence: None)
  Receive Date: 20080108
  Receipt Date: 20080103
  Transmission Date: 20080703
  Serious: Yes (Hospitalization)
  Sender: FDA-Public Use
  Company Number: US-ASTRAZENECA-2008UW00098

PATIENT
  Age: 77 Year
  Sex: Male

DRUGS (5)
  1. TOPROL-XL [Suspect]
     Indication: HYPERTENSION
     Route: 048
  2. TOPROL-XL [Suspect]
     Dosage: DOSE DECREASED
     Route: 048
     Dates: start: 20071202
  3. LEXAPRO [Suspect]
     Indication: DEPRESSION
     Route: 048
     Dates: start: 20071126
  4. LIPITOR [Concomitant]
  5. PAXIL [Concomitant]

REACTIONS (1)
  - HEART RATE DECREASED [None]
